FAERS Safety Report 8390309-1 (Version None)
Quarter: 2012Q2

REPORT INFORMATION
  Report Type: 
  Country: None (occurrence: None)
  Receive Date: 20120529
  Receipt Date: 20120522
  Transmission Date: 20120825
  Serious: Yes (Death, Hospitalization)
  Sender: FDA-Public Use
  Company Number: US-JNJFOC-20120407088

PATIENT
  Sex: Male
  Weight: 45.36 kg

DRUGS (3)
  1. PREDNISONE TAB [Concomitant]
     Indication: PROSTATE CANCER
     Route: 048
     Dates: start: 20110604
  2. FENTANYL-100 [Concomitant]
     Indication: PAIN
     Route: 062
     Dates: start: 20111024
  3. ZYTIGA [Suspect]
     Indication: PROSTATE CANCER
     Dosage: STRENGTH: 250 MG PER TABLET
     Route: 048
     Dates: start: 20110101, end: 20111227

REACTIONS (8)
  - GASTRIC DISORDER [None]
  - DRUG INEFFECTIVE [None]
  - PROSTATE CANCER [None]
  - PAIN [None]
  - NAUSEA [None]
  - SMALL INTESTINAL OBSTRUCTION [None]
  - BLOOD POTASSIUM DECREASED [None]
  - BLOOD GLUCOSE DECREASED [None]
